FAERS Safety Report 21555766 (Version 1)
Quarter: 2022Q4

REPORT INFORMATION
  Report Type: Spontaneous
  Country: DK (occurrence: DK)
  Receive Date: 20221104
  Receipt Date: 20221104
  Transmission Date: 20230113
  Serious: Yes (Other)
  Sender: FDA-Public Use
  Company Number: None

PATIENT
  Age: 58 Year
  Sex: Male

DRUGS (4)
  1. IRINOTECAN [Suspect]
     Active Substance: IRINOTECAN
     Indication: Pancreatic carcinoma
     Dosage: DOSAGE: 300 MG. STRENGTH: 20 MG /ML, DURATION : 11 DAYS
     Dates: start: 20211006, end: 20211017
  2. FLUOROURACIL [Suspect]
     Active Substance: FLUOROURACIL
     Indication: Pancreatic carcinoma
     Dosage: STRENGTH: UNKNOWN, DOSAGE: 4800 MG, DURATION : 11 DAYS
     Dates: start: 20211006, end: 20211017
  3. OXALIPLATIN [Suspect]
     Active Substance: OXALIPLATIN
     Indication: Pancreatic carcinoma
     Dosage: STRENGTH: 5 MG/ML. , DOSAGE: 170 MG. DURATION : 11 DAYS
     Dates: start: 20211006, end: 20211017
  4. FOLIC ACID [Suspect]
     Active Substance: FOLIC ACID
     Indication: Pancreatic carcinoma
     Dosage: STRENGTH: UNKNOWN, DOSAGE: UNKNOWN. DURATION : 11 DAYS
     Route: 065
     Dates: start: 20211006, end: 20211017

REACTIONS (3)
  - Abdominal pain [Recovered/Resolved]
  - Pancreatitis acute [Recovered/Resolved]
  - Diarrhoea [Recovered/Resolved]

NARRATIVE: CASE EVENT DATE: 20211001
